FAERS Safety Report 17934334 (Version 1)
Quarter: 2020Q2

REPORT INFORMATION
  Report Type: Report from Study
  Country: US (occurrence: US)
  Receive Date: 20200624
  Receipt Date: 20200624
  Transmission Date: 20200714
  Serious: Yes (Other)
  Sender: FDA-Public Use
  Company Number: US-BAUSCH-BL-2020-017528

PATIENT
  Age: 88 Year
  Sex: Male

DRUGS (4)
  1. XIFAXAN [Suspect]
     Active Substance: RIFAXIMIN
     Indication: PRODUCT USED FOR UNKNOWN INDICATION
     Route: 065
  2. TORSEMIDE. [Suspect]
     Active Substance: TORSEMIDE
     Indication: RENAL IMPAIRMENT
     Route: 065
  3. METOLAZONE. [Suspect]
     Active Substance: METOLAZONE
     Indication: RENAL IMPAIRMENT
     Dosage: OCCASIONALLY
     Route: 065
  4. IRON [Concomitant]
     Active Substance: IRON
     Indication: IRON DEFICIENCY
     Route: 065

REACTIONS (11)
  - Hepatic hydrothorax [Unknown]
  - Condition aggravated [Unknown]
  - Diarrhoea [Not Recovered/Not Resolved]
  - Hepatic steatosis [Unknown]
  - Hypotension [Not Recovered/Not Resolved]
  - Thrombocytopenia [Not Recovered/Not Resolved]
  - Renal impairment [Not Recovered/Not Resolved]
  - Somnolence [Not Recovered/Not Resolved]
  - Dyspnoea [Unknown]
  - Hepatic cirrhosis [Unknown]
  - Splenomegaly [Unknown]

NARRATIVE: CASE EVENT DATE: 2019
